FAERS Safety Report 8050969-1 (Version None)
Quarter: 2012Q1

REPORT INFORMATION
  Report Type: 
  Country: None (occurrence: None)
  Receive Date: 20120117
  Receipt Date: 20120110
  Transmission Date: 20120608
  Serious: Yes (Hospitalization)
  Sender: FDA-Public Use
  Company Number: PHHY2012VE003038

PATIENT
  Sex: Male

DRUGS (5)
  1. SINOPRYL [Concomitant]
  2. EPREX [Concomitant]
  3. FORADIL [Suspect]
  4. MANIDON [Concomitant]
  5. LOPID [Concomitant]

REACTIONS (1)
  - RESPIRATORY DISORDER [None]
